FAERS Safety Report 8224012-5 (Version None)
Quarter: 2012Q1

REPORT INFORMATION
  Report Type: 
  Country: None (occurrence: None)
  Receive Date: 20120321
  Receipt Date: 20120312
  Transmission Date: 20120608
  Serious: No
  Sender: FDA-Public Use
  Company Number: PHHY2012JP018712

PATIENT
  Age: 1 Month
  Sex: Male

DRUGS (3)
  1. TEGRETOL [Suspect]
     Indication: EPILEPSY
     Dosage: 5MG/KG DAILY
     Route: 048
     Dates: start: 20120122
  2. TEGRETOL [Suspect]
     Dosage: 90MG DAILY  20 MG/KG, UNK
     Route: 048
  3. TEGRETOL [Suspect]
     Dosage: 15MG/KG DAILY
     Route: 048
     Dates: start: 20120122

REACTIONS (3)
  - DRUG LEVEL DECREASED [None]
  - VOMITING [None]
  - SOMNOLENCE [None]
